FAERS Safety Report 5238203-9 (Version None)
Quarter: 2007Q1

REPORT INFORMATION
  Report Type: 
  Country: None (occurrence: None)
  Receive Date: 20070215
  Receipt Date: 20070131
  Transmission Date: 20070707
  Serious: Yes (Disabling)
  Sender: FDA-Public Use
  Company Number: PHRM2007FR00761

PATIENT
  Age: 58 Year
  Sex: Male

DRUGS (1)
  1. LESCOL [Suspect]
     Route: 048
     Dates: end: 20061101

REACTIONS (1)
  - TENDONITIS [None]
